FAERS Safety Report 21688575 (Version 1)
Quarter: 2022Q4

REPORT INFORMATION
  Report Type: Spontaneous
  Country: US (occurrence: US)
  Receive Date: 20221206
  Receipt Date: 20221206
  Transmission Date: 20230112
  Serious: No
  Sender: FDA-Public Use
  Company Number: US-MYLANLABS-2022M1122573

PATIENT
  Sex: Female
  Weight: 52.16 kg

DRUGS (1)
  1. NORETHINDRONE [Suspect]
     Active Substance: NORETHINDRONE
     Indication: Dysmenorrhoea
     Dosage: 0.35 MILLIGRAM, AM, (ON A DAILY BASIS, ONCE IN THE MORNING)
     Route: 048
     Dates: start: 20221006, end: 20221030

REACTIONS (2)
  - Bacterial vaginosis [Not Recovered/Not Resolved]
  - Polyp [Not Recovered/Not Resolved]
